FAERS Safety Report 4881319-7 (Version None)
Quarter: 2005Q4

REPORT INFORMATION
  Report Type: 
  Country: None (occurrence: None)
  Receive Date: 20051212
  Receipt Date: 20050914
  Transmission Date: 20060501
  Serious: Yes (Hospitalization)
  Sender: FDA-Public Use
  Company Number: 2005-01947

PATIENT
  Age: 63 Year
  Sex: Male
  Weight: 59 kg

DRUGS (6)
  1. VELCADE [Suspect]
     Indication: MULTIPLE MYELOMA
     Dosage: IV BOLUS
     Route: 040
     Dates: start: 20050803
  2. COUMADIN [Concomitant]
  3. ZOLOFT [Concomitant]
  4. ATENOLOL [Concomitant]
  5. DURAGESIC-100 [Concomitant]
  6. PERCOCET [Concomitant]

REACTIONS (3)
  - CHILLS [None]
  - HERPES ZOSTER [None]
  - PYREXIA [None]
